FAERS Safety Report 21246144 (Version 2)
Quarter: 2022Q4

REPORT INFORMATION
  Report Type: Report from Study
  Country: EG (occurrence: EG)
  Receive Date: 20220824
  Receipt Date: 20221003
  Transmission Date: 20230112
  Serious: Yes (Other)
  Sender: FDA-Public Use
  Company Number: EG-BAYER-2022A115554

PATIENT
  Sex: Female

DRUGS (1)
  1. EYLEA [Suspect]
     Active Substance: AFLIBERCEPT
     Indication: Product used for unknown indication
     Dosage: UNKNOWN NUMBER OF INJECTIONS, BUT MORE THAN 6 INJECTIONS, SOLUTION FOR INJECTION
     Route: 031
     Dates: start: 20211128, end: 202206

REACTIONS (2)
  - Retinal fibrosis [Recovering/Resolving]
  - Retinal oedema [Not Recovered/Not Resolved]

NARRATIVE: CASE EVENT DATE: 20220201
